FAERS Safety Report 6758037-3 (Version None)
Quarter: 2010Q2

REPORT INFORMATION
  Report Type: 
  Country: None (occurrence: None)
  Receive Date: 20100607
  Receipt Date: 20100601
  Transmission Date: 20101027
  Serious: Yes (Death, Hospitalization)
  Sender: FDA-Public Use
  Company Number: DE-ASTRAZENECA-2010SE25242

PATIENT
  Age: 61 Year
  Sex: Female
  Weight: 64 kg

DRUGS (2)
  1. ARIMIDEX [Suspect]
     Indication: BREAST CANCER
     Route: 048
     Dates: start: 20090601
  2. ANTHRACYCLINE- AND TAXANE CONTAINING THERAPIE [Concomitant]
     Dosage: 6 CYCLES PLANNED

REACTIONS (2)
  - ILL-DEFINED DISORDER [None]
  - SUDDEN DEATH [None]
